FAERS Safety Report 7096274-1 (Version None)
Quarter: 2010Q4

REPORT INFORMATION
  Report Type: 
  Country: None (occurrence: None)
  Receive Date: 20101109
  Receipt Date: 20101109
  Transmission Date: 20110411
  Serious: Yes (Other)
  Sender: FDA-Public Use
  Company Number: None

PATIENT
  Age: 53 Year
  Sex: Female
  Weight: 61.2356 kg

DRUGS (1)
  1. FLUOXETINE HCL [Suspect]
     Dosage: 3 CAPSULES ONCE A DAY PO
     Route: 048
     Dates: start: 20100612, end: 20100919

REACTIONS (3)
  - AGITATION [None]
  - ANGER [None]
  - PRODUCT SUBSTITUTION ISSUE [None]
